FAERS Safety Report 8973414 (Version 1)
Quarter: 2012Q4

REPORT INFORMATION
  Report Type: 
  Country: US (occurrence: US)
  Receive Date: 20121219
  Receipt Date: 20121219
  Transmission Date: 20130627
  Serious: Yes (Death, Other)
  Sender: FDA-Public Use
  Company Number: US-CELGENEUS-163-21880-12121210

PATIENT

DRUGS (3)
  1. REVLIMID [Suspect]
     Indication: SMALL LYMPHOCYTIC LYMPHOMA, CONSISTENT WITH CLL (WORKING FORMULATION) REFRACTORY
     Dosage: 5-10mg
     Route: 048
  2. BENDAMUSTINE [Suspect]
     Indication: SMALL LYMPHOCYTIC LYMPHOMA, CONSISTENT WITH CLL (WORKING FORMULATION) REFRACTORY
     Dosage: 90 milligram/sq. meter
     Route: 041
  3. RITUXIMAB [Suspect]
     Indication: SMALL LYMPHOCYTIC LYMPHOMA, CONSISTENT WITH CLL (WORKING FORMULATION) REFRACTORY
     Dosage: 375 milligram/sq. meter
     Route: 041

REACTIONS (13)
  - Death [Fatal]
  - B-cell small lymphocytic lymphoma recurrent [Fatal]
  - Lymphoma [Fatal]
  - Pneumonia [Fatal]
  - Cardiac failure [Fatal]
  - Neutropenia [Unknown]
  - Febrile neutropenia [Unknown]
  - Thrombocytopenia [Unknown]
  - Anaemia [Unknown]
  - Weight decreased [Unknown]
  - Failure to thrive [Unknown]
  - Infection [Unknown]
  - Rash [Unknown]
